FAERS Safety Report 5612475-0 (Version None)
Quarter: 2008Q1

REPORT INFORMATION
  Report Type: 
  Country: None (occurrence: None)
  Receive Date: 20080129
  Receipt Date: 20080118
  Transmission Date: 20080703
  Serious: Yes (Other)
  Sender: FDA-Public Use
  Company Number: 2007335806

PATIENT
  Age: 7 Year
  Sex: Male

DRUGS (7)
  1. LISTERINE AGENT COOL BLUE BUBBLE BLAST (NO ACTIVE INGREDIENT) [Suspect]
     Indication: DENTAL PLAQUE
     Dosage: A ^SWISH^ ONCE A DAY, ORAL
     Route: 048
     Dates: start: 20060101, end: 20071101
  2. FLOVENT [Concomitant]
  3. PREVACID [Concomitant]
  4. NASONEX [Concomitant]
  5. SINGULAIR ^DIECKMANN^ (MONTELUKAST SODIUM) [Concomitant]
  6. FLONASE [Concomitant]
  7. ALLERGY MEDICATION (ALLERGY MEDICATION) [Concomitant]

REACTIONS (4)
  - DENTAL CARIES [None]
  - FISTULA [None]
  - TOOTH ABSCESS [None]
  - TOOTH EXTRACTION [None]
